FAERS Safety Report 4637979-9 (Version None)
Quarter: 2005Q2

REPORT INFORMATION
  Report Type: 
  Country: None (occurrence: None)
  Receive Date: 20050415
  Receipt Date: 20050328
  Transmission Date: 20051028
  Serious: Yes (Hospitalization, Disabling)
  Sender: FDA-Public Use
  Company Number: USA050394237

PATIENT
  Age: 86 Year
  Sex: Male
  Weight: 66 kg

DRUGS (3)
  1. HUMALOG [Suspect]
     Dosage: 56 U DAY
     Dates: start: 20010101
  2. PLAVIX [Concomitant]
  3. ZOCOR (SIMVASTATIN RATIOPHARM) [Concomitant]

REACTIONS (3)
  - GANGRENE [None]
  - LEG AMPUTATION [None]
  - THYROID DISORDER [None]
